FAERS Safety Report 23861674 (Version 2)
Quarter: 2025Q3

REPORT INFORMATION
  Report Type: Spontaneous
  Country: CA (occurrence: CA)
  Receive Date: 20240516
  Receipt Date: 20250828
  Transmission Date: 20251020
  Serious: Yes (Death, Other)
  Sender: TAKEDA
  Company Number: CA-TEVA-VS-3196673

PATIENT
  Age: 42 Year
  Sex: Male

DRUGS (11)
  1. VENLAFAXINE HYDROCHLORIDE [Suspect]
     Active Substance: VENLAFAXINE HYDROCHLORIDE
     Indication: Anxiety
  2. VORTIOXETINE [Suspect]
     Active Substance: VORTIOXETINE
     Indication: Dopamine agonist withdrawal syndrome
     Dosage: UNK UNK, QD
  3. RASAGILINE [Suspect]
     Active Substance: RASAGILINE
     Indication: Dopamine agonist withdrawal syndrome
     Dosage: 1 MILLIGRAM, QD
  4. RASAGILINE [Suspect]
     Active Substance: RASAGILINE
     Indication: Parkinson^s disease
  5. BUPROPION [Suspect]
     Active Substance: BUPROPION
     Indication: Dopamine agonist withdrawal syndrome
     Dosage: 300 MILLIGRAM, QD
  6. CARBIDOPA\LEVODOPA [Suspect]
     Active Substance: CARBIDOPA\LEVODOPA
     Indication: Parkinson^s disease
  7. CARBIDOPA\LEVODOPA [Suspect]
     Active Substance: CARBIDOPA\LEVODOPA
     Indication: Dopamine agonist withdrawal syndrome
  8. ROTIGOTINE [Suspect]
     Active Substance: ROTIGOTINE
     Indication: Parkinson^s disease
  9. ROTIGOTINE [Suspect]
     Active Substance: ROTIGOTINE
  10. ROTIGOTINE [Suspect]
     Active Substance: ROTIGOTINE
  11. ROTIGOTINE [Suspect]
     Active Substance: ROTIGOTINE

REACTIONS (4)
  - Erectile dysfunction [Fatal]
  - Completed suicide [Fatal]
  - Drug ineffective for unapproved indication [Fatal]
  - Off label use [Fatal]
